FAERS Safety Report 6634009-4 (Version None)
Quarter: 2010Q1

REPORT INFORMATION
  Report Type: 
  Country: None (occurrence: None)
  Receive Date: 20100315
  Receipt Date: 20100303
  Transmission Date: 20100710
  Serious: Yes (Disabling)
  Sender: FDA-Public Use
  Company Number: PHHY2010GB02919

PATIENT
  Sex: Male

DRUGS (4)
  1. STALEVO 100 [Suspect]
     Indication: PARKINSON'S DISEASE
     Dosage: 1 TABLET DAILY
     Route: 048
  2. XATRAL                                  /FRA/ [Concomitant]
     Dosage: 10 MG, UNK
  3. MADOPAR CR [Concomitant]
  4. MIRAPEX [Concomitant]
     Dosage: 0.75 MG, TID

REACTIONS (1)
  - VISUAL ACUITY REDUCED [None]
